FAERS Safety Report 8552826 (Version 2)
Quarter: 2013Q2

REPORT INFORMATION
  Report Type: Spontaneous
  Country: US (occurrence: None)
  Receive Date: 20120327
  Receipt Date: 20120709
  Transmission Date: 20140414
  Serious: Yes (Other)
  Sender: FDA-Public Use
  Company Number: PHEH2009US16978

PATIENT
  Age: 77 Year
  Sex: Female

DRUGS (1)
  1. GLEEVEC [Suspect]
     Indication: CHRONIC MYELOID LEUKAEMIA
     Dosage: 300 MG DAILY, ORAL
     Route: 048
     Dates: start: 20091011

REACTIONS (6)
  - ANAEMIA [None]
  - OEDEMA [None]
  - EYE OEDEMA [None]
  - FEELING COLD [None]
  - PERIORBITAL OEDEMA [None]
  - THYROID DISORDER [None]
